FAERS Safety Report 11881055 (Version 2)
Quarter: 2016Q1

REPORT INFORMATION
  Report Type: Report from Study
  Country: TW (occurrence: TW)
  Receive Date: 20151230
  Receipt Date: 20160114
  Transmission Date: 20160526
  Serious: Yes (Death)
  Sender: FDA-Public Use
  Company Number: TW-ABBVIE-15K-153-1529499-00

PATIENT
  Age: 97 Year
  Sex: Female

DRUGS (1)
  1. HUMIRA [Suspect]
     Active Substance: ADALIMUMAB
     Indication: RHEUMATOID ARTHRITIS
     Route: 058
     Dates: end: 20151130

REACTIONS (4)
  - Pulmonary oedema [Fatal]
  - Cardiac failure [Fatal]
  - Asthenia [Unknown]
  - Syncope [Unknown]
